FAERS Safety Report 26123738 (Version 1)
Quarter: 2025Q4

REPORT INFORMATION
  Report Type: Spontaneous
  Country: EU (occurrence: EU)
  Receive Date: 20251205
  Receipt Date: 20251205
  Transmission Date: 20260118
  Serious: Yes (Death, Other)
  Sender: CELLTRION
  Company Number: EU-ROCHE-10000441988

PATIENT

DRUGS (9)
  1. RITUXIMAB [Suspect]
     Active Substance: RITUXIMAB
     Indication: Follicular lymphoma
     Route: 065
  2. CYCLOPHOSPHAMIDE [Concomitant]
     Active Substance: CYCLOPHOSPHAMIDE
  3. VINCRISTINE [Concomitant]
     Active Substance: VINCRISTINE
  4. PREDNISONE [Concomitant]
     Active Substance: PREDNISONE
  5. DEXAMETHASONE [Concomitant]
     Active Substance: DEXAMETHASONE
  6. CYTARABINE [Concomitant]
     Active Substance: CYTARABINE
  7. ADRIAMYCIN [Concomitant]
     Active Substance: DOXORUBICIN HYDROCHLORIDE
  8. CISPLATIN [Concomitant]
     Active Substance: CISPLATIN
  9. AMSACRINE [Concomitant]
     Active Substance: AMSACRINE

REACTIONS (3)
  - Haemophagocytic lymphohistiocytosis [Fatal]
  - Multiple organ dysfunction syndrome [Fatal]
  - Influenza [Fatal]
